FAERS Safety Report 18278117 (Version 1)
Quarter: 2020Q3

REPORT INFORMATION
  Report Type: Spontaneous
  Country: US (occurrence: US)
  Receive Date: 20200917
  Receipt Date: 20200917
  Transmission Date: 20201103
  Serious: No
  Sender: FDA-Public Use
  Company Number: US-BIOGEN-2020BI00923516

PATIENT
  Sex: Female

DRUGS (2)
  1. TECFIDERA [Suspect]
     Active Substance: DIMETHYL FUMARATE
     Indication: MULTIPLE SCLEROSIS
     Route: 048
     Dates: start: 20200320
  2. PEPTO?BISMOL [Suspect]
     Active Substance: BISMUTH SUBSALICYLATE
     Indication: PRODUCT USED FOR UNKNOWN INDICATION
     Route: 065

REACTIONS (4)
  - Mobility decreased [Unknown]
  - Abdominal discomfort [Not Recovered/Not Resolved]
  - Dyspepsia [Not Recovered/Not Resolved]
  - Constipation [Unknown]
